FAERS Safety Report 14233819 (Version 1)
Quarter: 2017Q4

REPORT INFORMATION
  Report Type: Spontaneous
  Country: US (occurrence: None)
  Receive Date: 20171128
  Receipt Date: 20171128
  Transmission Date: 20180321
  Serious: Yes (Hospitalization)
  Sender: FDA-Public Use
  Company Number: None

PATIENT
  Sex: Female

DRUGS (5)
  1. IBRANCE [Suspect]
     Active Substance: PALBOCICLIB
     Indication: BREAST CANCER
     Dosage: 125MG 1QD PO
     Route: 048
     Dates: start: 20171003
  2. XARELTO [Concomitant]
     Active Substance: RIVAROXABAN
  3. LETROZOLE. [Concomitant]
     Active Substance: LETROZOLE
  4. FAMOTIDINE. [Concomitant]
     Active Substance: FAMOTIDINE
  5. GABAPENTIN. [Concomitant]
     Active Substance: GABAPENTIN

REACTIONS (3)
  - Surgery [None]
  - Paralysis [None]
  - Paraesthesia [None]
